FAERS Safety Report 9654616 (Version 1)
Quarter: 2013Q4

REPORT INFORMATION
  Report Type: Spontaneous
  Country: US (occurrence: US)
  Receive Date: 20131029
  Receipt Date: 20131029
  Transmission Date: 20140711
  Serious: No
  Sender: FDA-Public Use
  Company Number: US-BIOGENIDEC-2013BI085457

PATIENT
  Sex: Female

DRUGS (2)
  1. TECFIDERA [Suspect]
     Indication: MULTIPLE SCLEROSIS
  2. TECFIDERA [Suspect]
     Indication: MULTIPLE SCLEROSIS

REACTIONS (8)
  - Hypoaesthesia [Recovered/Resolved]
  - Mobility decreased [Unknown]
  - Loss of control of legs [Recovered/Resolved]
  - Fall [Recovered/Resolved]
  - Urinary incontinence [Unknown]
  - Abasia [Unknown]
  - Incontinence [Unknown]
  - Micturition urgency [Unknown]
